FAERS Safety Report 4316880-4 (Version None)
Quarter: 2004Q1

REPORT INFORMATION
  Report Type: 
  Country: None (occurrence: None)
  Receive Date: 20040312
  Receipt Date: 20040312
  Transmission Date: 20041129
  Serious: Yes (Hospitalization)
  Sender: FDA-Public Use
  Company Number: None

PATIENT
  Age: 57 Year
  Sex: Male

DRUGS (7)
  1. ZOSYN [Suspect]
     Indication: CELLULITIS
     Dosage: 3.375 GM Q 6 HR IVPB
     Route: 042
     Dates: start: 20031116, end: 20031201
  2. INSULIN [Concomitant]
  3. FERROUS SULFATE TAB [Concomitant]
  4. CHOLESTYRAMINE [Concomitant]
  5. LOPID [Concomitant]
  6. LOVENOX [Concomitant]
  7. MONOPRIL [Concomitant]

REACTIONS (3)
  - NEPHRITIS INTERSTITIAL [None]
  - RASH [None]
  - RENAL FAILURE ACUTE [None]
